FAERS Safety Report 17192948 (Version 2)
Quarter: 2020Q3

REPORT INFORMATION
  Report Type: Spontaneous
  Country: US (occurrence: US)
  Receive Date: 20191223
  Receipt Date: 20200901
  Transmission Date: 20201102
  Serious: No
  Sender: FDA-Public Use
  Company Number: US-SA-2019SA346734

PATIENT

DRUGS (7)
  1. DUPIXENT [Suspect]
     Active Substance: DUPILUMAB
     Indication: SINUSITIS
  2. ZYRTEC [Concomitant]
     Active Substance: CETIRIZINE HYDROCHLORIDE
  3. ZANTAC [Concomitant]
     Active Substance: RANITIDINE HYDROCHLORIDE
  4. DUPIXENT [Suspect]
     Active Substance: DUPILUMAB
     Indication: NASAL POLYPS
     Dosage: 300 MG, QOW
     Route: 058
     Dates: start: 20191115, end: 202004
  5. FAMOTIDINE. [Concomitant]
     Active Substance: FAMOTIDINE
  6. OMPRAZOLE [Concomitant]
     Active Substance: OMEPRAZOLE
  7. EPIPEN [Concomitant]
     Active Substance: EPINEPHRINE

REACTIONS (4)
  - Nasal polyps [Unknown]
  - Condition aggravated [Recovered/Resolved]
  - Rebound effect [Unknown]
  - Tonsillolith [Recovered/Resolved]

NARRATIVE: CASE EVENT DATE: 20191116
